FAERS Safety Report 8215610-3 (Version None)
Quarter: 2012Q1

REPORT INFORMATION
  Report Type: 
  Country: None (occurrence: None)
  Receive Date: 20120316
  Receipt Date: 20120306
  Transmission Date: 20120608
  Serious: Yes (Death)
  Sender: FDA-Public Use
  Company Number: CA-ABBOTT-12P-028-0909360-00

PATIENT
  Sex: Male
  Weight: 93.07 kg

DRUGS (1)
  1. LUPRON DEPOT [Suspect]
     Indication: PROSTATE CANCER
     Route: 050
     Dates: start: 20080530

REACTIONS (2)
  - MULTI-ORGAN FAILURE [None]
  - PROSTATE CANCER [None]
